FAERS Safety Report 10638526 (Version 4)
Quarter: 2015Q1

REPORT INFORMATION
  Report Type: Spontaneous
  Country: US (occurrence: None)
  Receive Date: 20141204
  Receipt Date: 20150115
  Transmission Date: 20150720
  Serious: Yes (Other)
  Sender: FDA-Public Use
  Company Number: 2014-US-015653

PATIENT
  Age: 30 Year
  Sex: Male

DRUGS (1)
  1. XYREM [Suspect]
     Active Substance: SODIUM OXYBATE
     Indication: NARCOLEPSY
     Route: 048
     Dates: start: 200612

REACTIONS (9)
  - Aspiration [None]
  - Coma [None]
  - Facial pain [None]
  - Unevaluable event [None]
  - Pyrexia [None]
  - Fall [None]
  - Hip fracture [None]
  - Generalised tonic-clonic seizure [None]
  - Staphylococcal infection [None]

NARRATIVE: CASE EVENT DATE: 20141201
